FAERS Safety Report 23643634 (Version 1)
Quarter: 2024Q1

REPORT INFORMATION
  Report Type: Report from Study
  Country: US (occurrence: US)
  Receive Date: 20240318
  Receipt Date: 20240318
  Transmission Date: 20240410
  Serious: Yes (Other)
  Sender: FDA-Public Use
  Company Number: US-TAKEDA-2022TUS048407

PATIENT
  Age: 44 Year
  Sex: Female
  Weight: 68 kg

DRUGS (10)
  1. HUMAN IMMUNOGLOBULIN G [Suspect]
     Active Substance: HUMAN IMMUNOGLOBULIN G
     Indication: Congenital hypogammaglobulinaemia
     Dosage: 7 GRAM, 1/WEEK
     Route: 058
     Dates: start: 20220325
  2. RAMELTEON [Suspect]
     Active Substance: RAMELTEON
     Indication: Product used for unknown indication
     Dosage: UNK
     Route: 065
     Dates: start: 20220721
  3. DIPHENHYDRAMINE [Suspect]
     Active Substance: DIPHENHYDRAMINE
     Indication: Product used for unknown indication
     Dosage: UNK
     Route: 065
  4. PFIZER-BIONTECH COVID-19 VACCINE [Concomitant]
     Active Substance: TOZINAMERAN
     Dosage: UNK
     Route: 065
  5. EPINEPHRINE [Concomitant]
     Active Substance: EPINEPHRINE
     Dosage: UNK
     Route: 065
  6. Lmx [Concomitant]
     Dosage: UNK
     Route: 065
  7. ACETAMINOPHEN [Concomitant]
     Active Substance: ACETAMINOPHEN
     Dosage: UNK
     Route: 065
  8. ZOLOFT [Concomitant]
     Active Substance: SERTRALINE HYDROCHLORIDE
     Dosage: UNK
     Route: 065
  9. HYDROXYZINE HYDROCHLORIDE [Concomitant]
     Active Substance: HYDROXYZINE HYDROCHLORIDE
     Dosage: UNK
     Route: 065
  10. FAMOTIDINE [Concomitant]
     Active Substance: FAMOTIDINE
     Dosage: UNK
     Route: 065

REACTIONS (29)
  - Glaucoma [Unknown]
  - Mood swings [Unknown]
  - Catheter site related reaction [Unknown]
  - Mouth swelling [Unknown]
  - Drug hypersensitivity [Unknown]
  - Swollen tongue [Unknown]
  - Nasal dryness [Unknown]
  - Pharyngeal ulceration [Unknown]
  - Ear infection [Unknown]
  - Rhinitis [Unknown]
  - Viral pharyngitis [Unknown]
  - Localised infection [Unknown]
  - Ear infection fungal [Unknown]
  - Oral fungal infection [Unknown]
  - Influenza A virus test positive [Not Recovered/Not Resolved]
  - Blood lactic acid increased [Unknown]
  - Blood ketone body increased [Unknown]
  - Fluid intake reduced [Unknown]
  - Night blindness [Unknown]
  - Incision site vesicles [Unknown]
  - Memory impairment [Unknown]
  - Abdominal discomfort [Unknown]
  - Decreased appetite [Unknown]
  - Hyperhidrosis [Unknown]
  - Infusion site pain [Unknown]
  - Infusion site erythema [Unknown]
  - Fatigue [Unknown]
  - Influenza [Unknown]
  - Product dose omission issue [Unknown]

NARRATIVE: CASE EVENT DATE: 20230105
